FAERS Safety Report 9196393 (Version 1)
Quarter: 2013Q1

REPORT INFORMATION
  Report Type: Spontaneous
  Country: US (occurrence: None)
  Receive Date: 20120709
  Receipt Date: 20120709
  Transmission Date: 20140127
  Serious: Yes (Hospitalization)
  Sender: FDA-Public Use
  Company Number: 2012HGS-003633

PATIENT
  Age: 33 Year
  Sex: Female

DRUGS (3)
  1. BENLYSTA [Suspect]
     Indication: SYSTEMIC LUPUS ERYTHEMATOSUS
     Route: 041
  2. PREDNISONE (PREDNISONE) (PREDNISONE) [Concomitant]
  3. CELLCEPT (MYCOPHENOLATE MOFETIL) (MYCOPHENOLATE MOFETIL) [Concomitant]

REACTIONS (12)
  - Hypersensitivity [None]
  - Rash [None]
  - Pyrexia [None]
  - Systemic lupus erythematosus [None]
  - Vasculitis [None]
  - Skin ulcer [None]
  - Anaemia [None]
  - Complement factor decreased [None]
  - Malaise [None]
  - Leukopenia [None]
  - Sensation of heaviness [None]
  - Pain in extremity [None]
